FAERS Safety Report 9546829 (Version 2)
Quarter: 2013Q4

REPORT INFORMATION
  Report Type: Spontaneous
  Country: US (occurrence: US)
  Receive Date: 20130924
  Receipt Date: 20131011
  Transmission Date: 20140711
  Serious: Yes (Other)
  Sender: FDA-Public Use
  Company Number: US-BRISTOL-MYERS SQUIBB COMPANY-19383926

PATIENT
  Age: 67 Year
  Sex: Male

DRUGS (3)
  1. ABILIFY [Suspect]
     Indication: AGITATION
     Dates: start: 20130903
  2. ABILIFY [Suspect]
     Indication: SUICIDAL IDEATION
     Dates: start: 20130903
  3. ABILIFY [Suspect]
     Indication: DEPRESSION
     Dates: start: 20130903

REACTIONS (1)
  - Frustration [Recovering/Resolving]
